FAERS Safety Report 11589786 (Version 1)
Quarter: 2015Q4

REPORT INFORMATION
  Report Type: Spontaneous
  Country: MX (occurrence: MX)
  Receive Date: 20151002
  Receipt Date: 20151002
  Transmission Date: 20160304
  Serious: Yes (Other)
  Sender: FDA-Public Use
  Company Number: MX-PFIZER INC-2015326074

PATIENT
  Age: 50 Year
  Sex: Female
  Weight: 68 kg

DRUGS (5)
  1. SINERGIX [Concomitant]
     Indication: MYALGIA
     Dosage: 10 DF (DROPS), 2X/DAY
     Route: 048
     Dates: start: 2013, end: 201508
  2. LYRICA [Suspect]
     Active Substance: PREGABALIN
     Indication: FIBROMYALGIA
     Dosage: 37.5 MG (1/2 CAPSULE), 1X/DAY
     Route: 048
     Dates: start: 2013, end: 201508
  3. SINERGIX [Concomitant]
     Indication: ARTHRALGIA
  4. ALBENDAZOL [Suspect]
     Active Substance: ALBENDAZOLE
     Indication: HELMINTHIC INFECTION
     Dosage: 1 DF, 1X/DAY
     Route: 048
     Dates: start: 20150830, end: 20150830
  5. LYRICA [Suspect]
     Active Substance: PREGABALIN
     Indication: OSTEOARTHRITIS

REACTIONS (4)
  - Hepatic steatosis [Unknown]
  - Drug-induced liver injury [Recovering/Resolving]
  - Intentional product misuse [Unknown]
  - Hepatotoxicity [Recovering/Resolving]

NARRATIVE: CASE EVENT DATE: 2013
